FAERS Safety Report 9713860 (Version 4)
Quarter: 2015Q1

REPORT INFORMATION
  Report Type: Spontaneous
  Country: US (occurrence: US)
  Receive Date: 20131126
  Receipt Date: 20150112
  Transmission Date: 20150721
  Serious: Yes (Hospitalization, Other)
  Sender: FDA-Public Use
  Company Number: US-GLAXOSMITHKLINE-A1051265A

PATIENT
  Sex: Female

DRUGS (14)
  1. ATACAND [Concomitant]
     Active Substance: CANDESARTAN CILEXETIL
  2. TRAMADOL [Concomitant]
     Active Substance: TRAMADOL
  3. ADVAIR DISKUS [Suspect]
     Active Substance: FLUTICASONE PROPIONATE\SALMETEROL XINAFOATE
     Indication: CHRONIC OBSTRUCTIVE PULMONARY DISEASE
     Dosage: 1 DF, BID
     Route: 055
     Dates: start: 2000
  4. SINGULAIR [Concomitant]
     Active Substance: MONTELUKAST SODIUM
  5. PRILOSEC [Concomitant]
     Active Substance: OMEPRAZOLE MAGNESIUM
  6. LORTAB (ACETAMINOPHEN + HYDROCODONE) [Concomitant]
  7. ALBUTEROL. [Concomitant]
     Active Substance: ALBUTEROL
  8. ADVAIR DISKUS [Suspect]
     Active Substance: FLUTICASONE PROPIONATE\SALMETEROL XINAFOATE
     Indication: ASTHMA
  9. PROAIR HFA [Concomitant]
     Active Substance: ALBUTEROL SULFATE
  10. VALIUM [Concomitant]
     Active Substance: DIAZEPAM
  11. PREDNISONE. [Concomitant]
     Active Substance: PREDNISONE
  12. EPIPEN [Concomitant]
     Active Substance: EPINEPHRINE
  13. CARAFATE [Concomitant]
     Active Substance: SUCRALFATE
  14. LOMOTIL [Concomitant]
     Active Substance: ATROPINE SULFATE\DIPHENOXYLATE HYDROCHLORIDE

REACTIONS (11)
  - Abdominal pain lower [Recovered/Resolved]
  - Back pain [Recovered/Resolved]
  - Staphylococcal infection [Not Recovered/Not Resolved]
  - Dysphonia [Not Recovered/Not Resolved]
  - Surgery [Unknown]
  - Neoplasm malignant [Unknown]
  - Abdominal abscess [Not Recovered/Not Resolved]
  - Colon cancer [Recovered/Resolved]
  - Sepsis [Unknown]
  - Escherichia urinary tract infection [Recovered/Resolved]
  - Pancreatic cyst [Unknown]

NARRATIVE: CASE EVENT DATE: 2009
